FAERS Safety Report 7794906-3 (Version None)
Quarter: 2011Q4

REPORT INFORMATION
  Report Type: 
  Country: None (occurrence: None)
  Receive Date: 20111004
  Receipt Date: 20110926
  Transmission Date: 20120403
  Serious: Yes (Hospitalization, Other)
  Sender: FDA-Public Use
  Company Number: PHHY2011BR86113

PATIENT
  Age: 1 Year
  Sex: Female

DRUGS (1)
  1. TRILEPTAL [Suspect]
     Indication: CONVULSION
     Route: 048

REACTIONS (3)
  - DRUG ADMINISTERED TO PATIENT OF INAPPROPRIATE AGE [None]
  - DRUG DEPENDENCE [None]
  - CONVULSION [None]
